FAERS Safety Report 14768766 (Version 1)
Quarter: 2018Q2

REPORT INFORMATION
  Report Type: Spontaneous
  Country: US (occurrence: US)
  Receive Date: 20180417
  Receipt Date: 20180417
  Transmission Date: 20180711
  Serious: No
  Sender: FDA-Public Use
  Company Number: US-ASTRAZENECA-2018SE35517

PATIENT
  Sex: Male
  Weight: 83.9 kg

DRUGS (3)
  1. SYMBICORT [Suspect]
     Active Substance: BUDESONIDE\FORMOTEROL FUMARATE DIHYDRATE
     Indication: DYSPNOEA
     Dosage: 80/4.5 MICROGRAMS 120 INHALATIONS, 2 PUFFS TWICE A DAY
     Route: 055
     Dates: start: 20180314
  2. SYMBICORT [Suspect]
     Active Substance: BUDESONIDE\FORMOTEROL FUMARATE DIHYDRATE
     Indication: CHRONIC OBSTRUCTIVE PULMONARY DISEASE
     Dosage: 80/4.5 MICROGRAMS 120 INHALATIONS, 2 PUFFS TWICE A DAY
     Route: 055
     Dates: start: 20180314
  3. PROAIR INHALER [Concomitant]
     Active Substance: ALBUTEROL SULFATE
     Indication: DYSPNOEA
     Route: 055

REACTIONS (2)
  - Drug effect incomplete [Unknown]
  - Dyspnoea [Unknown]
